FAERS Safety Report 5380595-4 (Version None)
Quarter: 2007Q3

REPORT INFORMATION
  Report Type: 
  Country: None (occurrence: None)
  Receive Date: 20070706
  Receipt Date: 20070703
  Transmission Date: 20080115
  Serious: Yes (Other)
  Sender: FDA-Public Use
  Company Number: NL-ASTRAZENECA-2007AC00854

PATIENT
  Age: 28567 Day
  Sex: Male

DRUGS (7)
  1. CRESTOR [Suspect]
     Indication: BLOOD CHOLESTEROL
     Route: 048
     Dates: start: 20070426, end: 20070510
  2. GEMFIBROZIL [Concomitant]
  3. METFORMINE [Concomitant]
     Indication: DIABETES MELLITUS
     Dates: start: 19980101
  4. GLUCOBAY [Concomitant]
     Indication: DIABETES MELLITUS
     Dates: start: 19980101
  5. GLIBENCLAMIDE [Concomitant]
     Indication: DIABETES MELLITUS
     Dates: start: 19980101
  6. ACETYLSALICYLZUUR [Concomitant]
     Dates: start: 19980101
  7. RANITIDINE [Concomitant]
     Indication: ILL-DEFINED DISORDER
     Dates: start: 19980101

REACTIONS (1)
  - HYPOGLYCAEMIA [None]
